FAERS Safety Report 15455886 (Version 1)
Quarter: 2018Q4

REPORT INFORMATION
  Report Type: Spontaneous
  Country: US (occurrence: US)
  Receive Date: 20181002
  Receipt Date: 20181002
  Transmission Date: 20190204
  Serious: Yes (Death, Other)
  Sender: FDA-Public Use
  Company Number: US-TARO PHARMACEUTICALS USA.,INC-2018SUN00495

PATIENT
  Age: 72 Year
  Sex: Male

DRUGS (5)
  1. WARFARIN [Suspect]
     Active Substance: WARFARIN
     Indication: HEART VALVE REPLACEMENT
  2. WARFARIN [Suspect]
     Active Substance: WARFARIN
     Indication: ANTICOAGULANT THERAPY
     Dosage: UNK
     Route: 065
  3. WARFARIN [Suspect]
     Active Substance: WARFARIN
     Indication: PROPHYLAXIS
  4. WARFARIN [Suspect]
     Active Substance: WARFARIN
     Indication: ATRIAL FIBRILLATION
  5. SEVELAMER [Concomitant]
     Active Substance: SEVELAMER
     Indication: HYPERPHOSPHATAEMIA
     Dosage: UNK
     Route: 065

REACTIONS (4)
  - Calciphylaxis [Not Recovered/Not Resolved]
  - Superinfection [Not Recovered/Not Resolved]
  - Septic shock [Fatal]
  - Sepsis [Not Recovered/Not Resolved]
